FAERS Safety Report 8196964-3 (Version None)
Quarter: 2012Q1

REPORT INFORMATION
  Report Type: 
  Country: None (occurrence: None)
  Receive Date: 20120309
  Receipt Date: 20120228
  Transmission Date: 20120608
  Serious: Yes (Hospitalization)
  Sender: FDA-Public Use
  Company Number: JP-AMGEN-JPNCT2011026638

PATIENT
  Age: 57 Year
  Sex: Male
  Weight: 57 kg

DRUGS (9)
  1. RAMELTEON [Concomitant]
     Dosage: UNK UNK, QD
     Route: 048
     Dates: start: 20100622, end: 20100902
  2. CORTICOSTEROIDS [Concomitant]
     Indication: PROPHYLAXIS
     Dosage: UNK
     Route: 065
  3. OXALIPLATIN [Concomitant]
     Indication: COLORECTAL CANCER
     Route: 041
     Dates: start: 20100706, end: 20100902
  4. FLUOROURACIL [Concomitant]
     Indication: COLORECTAL CANCER
     Route: 040
     Dates: start: 20100706, end: 20100902
  5. LEVOLEUCOVORIN CALCIUM [Concomitant]
     Indication: COLORECTAL CANCER
     Route: 041
     Dates: start: 20100706, end: 20100902
  6. PRIMPERAN TAB [Concomitant]
     Dosage: UNK UNK, QD
     Route: 042
     Dates: start: 20100622, end: 20100902
  7. FLUOROURACIL [Concomitant]
     Route: 041
     Dates: start: 20100706, end: 20100902
  8. PANITUMUMAB [Suspect]
     Indication: COLORECTAL CANCER
     Dosage: 6 MG/KG, Q2WK
     Route: 041
     Dates: start: 20100706, end: 20100831
  9. DECADRON [Concomitant]
     Route: 042
     Dates: start: 20100622, end: 20100902

REACTIONS (1)
  - INTERSTITIAL LUNG DISEASE [None]
